FAERS Safety Report 7452134-5 (Version None)
Quarter: 2011Q2

REPORT INFORMATION
  Report Type: 
  Country: None (occurrence: None)
  Receive Date: 20110502
  Receipt Date: 20100826
  Transmission Date: 20111010
  Serious: No
  Sender: FDA-Public Use
  Company Number: US-ASTRAZENECA-2010SE40276

PATIENT
  Age: 27131 Day
  Sex: Male
  Weight: 87.1 kg

DRUGS (1)
  1. NEXIUM [Suspect]
     Indication: GASTROOESOPHAGEAL REFLUX DISEASE
     Route: 048

REACTIONS (3)
  - FLUSHING [None]
  - ASTHENIA [None]
  - INCORRECT DOSE ADMINISTERED [None]
